FAERS Safety Report 18057520 (Version 5)
Quarter: 2021Q1

REPORT INFORMATION
  Report Type: Spontaneous
  Country: US (occurrence: US)
  Receive Date: 20200723
  Receipt Date: 20210122
  Transmission Date: 20210419
  Serious: Yes (Death, Hospitalization)
  Sender: FDA-Public Use
  Company Number: US-BIOGEN-2020BI00896005

PATIENT
  Sex: Female

DRUGS (1)
  1. TYSABRI [Suspect]
     Active Substance: NATALIZUMAB
     Indication: MULTIPLE SCLEROSIS
     Dosage: INFUSED OVER 1 HOUR
     Route: 042
     Dates: start: 20190717, end: 20200616

REACTIONS (6)
  - Sepsis [Recovered/Resolved]
  - Drug ineffective [Unknown]
  - Kidney infection [Unknown]
  - Hypertension [Fatal]
  - Respiratory failure [Fatal]
  - Nephrolithiasis [Not Recovered/Not Resolved]
